FAERS Safety Report 19821275 (Version 1)
Quarter: 2021Q3

REPORT INFORMATION
  Report Type: Report from Study
  Country: US (occurrence: US)
  Receive Date: 20210913
  Receipt Date: 20210913
  Transmission Date: 20211014
  Serious: Yes (Death, Other)
  Sender: FDA-Public Use
  Company Number: US-GILEAD-2021-0547975

PATIENT
  Age: 59 Year
  Sex: Male

DRUGS (2)
  1. HYDROCORT 1 A PHARMA [Concomitant]
  2. AZTREONAM LYSINE [Suspect]
     Active Substance: AZTREONAM LYSINE
     Indication: CHRONIC OBSTRUCTIVE PULMONARY DISEASE
     Dosage: 75 MG, TID
     Route: 055
     Dates: start: 20210612

REACTIONS (2)
  - Off label use [Recovered/Resolved]
  - Death [Fatal]

NARRATIVE: CASE EVENT DATE: 20210818
